FAERS Safety Report 9891096 (Version 1)
Quarter: 2014Q1

REPORT INFORMATION
  Report Type: Spontaneous
  Country: US (occurrence: None)
  Receive Date: 20140211
  Receipt Date: 20140211
  Transmission Date: 20141002
  Serious: Yes (Hospitalization)
  Sender: FDA-Public Use
  Company Number: None

PATIENT
  Age: 3 Year
  Sex: Male
  Weight: 17.5 kg

DRUGS (4)
  1. DEXAMETHASONE [Suspect]
  2. DOXORUBICIN HYDROCHLORIDE [Suspect]
  3. METHOTREXATE [Suspect]
  4. VINCRISTINE SULFATE [Suspect]

REACTIONS (7)
  - Septic shock [None]
  - Acute respiratory distress syndrome [None]
  - Respiratory syncytial virus infection [None]
  - Bacterial sepsis [None]
  - Pseudomonas test positive [None]
  - Continuous haemodiafiltration [None]
  - Pneumocystis jirovecii pneumonia [None]
